FAERS Safety Report 7945422-7 (Version None)
Quarter: 2011Q4

REPORT INFORMATION
  Report Type: 
  Country: None (occurrence: None)
  Receive Date: 20111122
  Receipt Date: 20111013
  Transmission Date: 20120403
  Serious: Yes (Hospitalization)
  Sender: FDA-Public Use
  Company Number: 2011SP048511

PATIENT
  Age: 10 Year
  Sex: Male
  Weight: 25.6 kg

DRUGS (7)
  1. ETOPOSIDE [Suspect]
     Indication: NEUROBLASTOMA
     Dates: start: 20110914, end: 20110918
  2. DILAUDID [Concomitant]
  3. TEMODAR [Suspect]
     Indication: NEUROBLASTOMA
     Dates: start: 20110914, end: 20110918
  4. IRINOTECAN HCL [Suspect]
     Indication: NEUROBLASTOMA
     Dates: start: 20110914, end: 20110918
  5. CARBOPLATIN [Suspect]
     Indication: NEUROBLASTOMA
     Dates: start: 20110914, end: 20110918
  6. HYDROMORPHONE HCL [Concomitant]
  7. CYCLOPHOSPHAMIDE [Suspect]
     Indication: NEUROBLASTOMA
     Dates: start: 20110914, end: 20110918

REACTIONS (4)
  - OESOPHAGEAL PAIN [None]
  - STOMATITIS [None]
  - ABDOMINAL PAIN UPPER [None]
  - HYPOPHAGIA [None]
